FAERS Safety Report 4352407-9 (Version None)
Quarter: 2004Q3

REPORT INFORMATION
  Report Type: 
  Country: None (occurrence: None)
  Receive Date: 20040428
  Receipt Date: 20040415
  Transmission Date: 20050211
  Serious: Yes (Hospitalization, Other)
  Sender: FDA-Public Use
  Company Number: 2004025807

PATIENT
  Age: 78 Year
  Sex: Female

DRUGS (4)
  1. ZOLOFT [Suspect]
     Indication: ILL-DEFINED DISORDER
     Dates: start: 20040218, end: 20040227
  2. SPIRONOLACTONE, ALTIZIDE (ALTIZIDE SPIRONOLACTONE) [Suspect]
     Indication: ILL-DEFINED DISORDER
     Dates: end: 20040227
  3. PANTOPRAZOLE SODIUM [Suspect]
     Indication: ILL-DEFINED DISORDER
     Dates: start: 20040206, end: 20040227
  4. PERINDOPRIL (PERINDOPRIL) [Concomitant]

REACTIONS (5)
  - DEPRESSED LEVEL OF CONSCIOUSNESS [None]
  - FALL [None]
  - HYPONATRAEMIA [None]
  - NERVOUS SYSTEM DISORDER [None]
  - SOMNOLENCE [None]
